FAERS Safety Report 19501031 (Version 1)
Quarter: 2021Q3

REPORT INFORMATION
  Report Type: Spontaneous
  Country: US (occurrence: US)
  Receive Date: 20210702
  Receipt Date: 20210702
  Transmission Date: 20211014
  Serious: Yes (Death)
  Sender: FDA-Public Use
  Company Number: None

PATIENT
  Sex: Female

DRUGS (20)
  1. FUROSEMIDE. [Concomitant]
     Active Substance: FUROSEMIDE
  2. TRAZODONE [Suspect]
     Active Substance: TRAZODONE HYDROCHLORIDE
  3. ESBRIET [Suspect]
     Active Substance: PIRFENIDONE
     Indication: IDIOPATHIC PULMONARY FIBROSIS
     Route: 048
     Dates: start: 20200729, end: 20210618
  4. ELIQUIS [Concomitant]
     Active Substance: APIXABAN
  5. FLECAINIDE [Concomitant]
     Active Substance: FLECAINIDE
  6. LOSARTAN POT [Concomitant]
     Active Substance: LOSARTAN POTASSIUM
  7. ALPRAZOLAM. [Concomitant]
     Active Substance: ALPRAZOLAM
  8. NIFEDIPINE. [Concomitant]
     Active Substance: NIFEDIPINE
  9. TRINTELLIX [Concomitant]
     Active Substance: VORTIOXETINE HYDROBROMIDE
  10. METOPROL TAR [Concomitant]
  11. BUPROPN HCL XL [Concomitant]
  12. DESVENLAFAX ER [Concomitant]
  13. POT CL MICRO ER [Concomitant]
  14. SIMVASTATIN. [Concomitant]
     Active Substance: SIMVASTATIN
  15. BISOPROL FUM [Concomitant]
     Active Substance: BISOPROLOL FUMARATE
  16. CHLORTHALID [Suspect]
     Active Substance: CHLORTHALIDONE
  17. DONEPEZIL. [Concomitant]
     Active Substance: DONEPEZIL
  18. HYDROCOHLOROT [Concomitant]
  19. METRONIDAZOL [Concomitant]
     Active Substance: METRONIDAZOLE
  20. VITAMIN D [Concomitant]
     Active Substance: VITAMIN D NOS

REACTIONS (1)
  - Death [None]
